FAERS Safety Report 11499666 (Version 1)
Quarter: 2015Q3

REPORT INFORMATION
  Report Type: Report from Study
  Country: US (occurrence: US)
  Receive Date: 20150914
  Receipt Date: 20150914
  Transmission Date: 20151125
  Serious: No
  Sender: FDA-Public Use
  Company Number: US-AMGEN-USASL2015093497

PATIENT
  Sex: Female

DRUGS (1)
  1. ENBREL [Suspect]
     Active Substance: ETANERCEPT
     Indication: RHEUMATOID ARTHRITIS
     Dosage: 50 MG, Q2WK (ONCE EVERY 14 DAYS)
     Route: 065
     Dates: start: 2007

REACTIONS (3)
  - Blood iron decreased [Unknown]
  - Osteoarthritis [Unknown]
  - Intentional product misuse [Unknown]
